FAERS Safety Report 6739822-0 (Version None)
Quarter: 2010Q2

REPORT INFORMATION
  Report Type: 
  Country: None (occurrence: None)
  Receive Date: 20100525
  Receipt Date: 20100512
  Transmission Date: 20101027
  Serious: Yes (Hospitalization)
  Sender: FDA-Public Use
  Company Number: PHHY2010US30980

PATIENT
  Sex: Female
  Weight: 70 kg

DRUGS (2)
  1. EXJADE [Suspect]
     Indication: APLASTIC ANAEMIA
     Dosage: 1750 MG, DAILY
     Route: 048
     Dates: start: 20090923
  2. AMOXICILLIN [Concomitant]

REACTIONS (1)
  - BONE MARROW DISORDER [None]
